FAERS Safety Report 8206839-9 (Version None)
Quarter: 2012Q1

REPORT INFORMATION
  Report Type: 
  Country: None (occurrence: None)
  Receive Date: 20120314
  Receipt Date: 20120308
  Transmission Date: 20120608
  Serious: Yes (Other)
  Sender: FDA-Public Use
  Company Number: US-AMGEN-USASP2012015498

PATIENT
  Age: 53 Year
  Sex: Male

DRUGS (2)
  1. NEUPOGEN [Suspect]
     Indication: ACUTE MYELOID LEUKAEMIA
  2. ANTINEOPLASTIC AGENTS [Concomitant]
     Indication: ACUTE MYELOID LEUKAEMIA

REACTIONS (2)
  - SWOLLEN TONGUE [None]
  - GENERAL PHYSICAL HEALTH DETERIORATION [None]
